FAERS Safety Report 10109379 (Version 1)
Quarter: 2014Q2

REPORT INFORMATION
  Report Type: Spontaneous
  Country: US (occurrence: None)
  Receive Date: 20140421
  Receipt Date: 20140421
  Transmission Date: 20141212
  Serious: No
  Sender: FDA-Public Use
  Company Number: AEGR000280

PATIENT
  Age: 58 Year
  Sex: Male
  Weight: 90.7 kg

DRUGS (9)
  1. JUXTAPID [Suspect]
     Indication: TYPE IIA HYPERLIPIDAEMIA
     Route: 048
     Dates: start: 20131227, end: 20140117
  2. WELCHOL (COLESEVELAM HYDROCHLORIDE) [Concomitant]
  3. CRESTOR (ROSUVASTATIN CALCIUM) [Concomitant]
  4. NIASPAN (NICOTINIC ACID) [Concomitant]
  5. LOVAZA (OMEGA-3-ACID ETHYL ESTER) [Concomitant]
  6. SYNTHROID (LEVOTHYROXINE SODIUM) [Concomitant]
  7. BENAZEPRIL (BENAZEPRIL) [Concomitant]
  8. HYDROCHLOROTHIAZIDE (HYDROCHLOROTHIAZIDE) [Concomitant]
  9. CIALIS (TADALAFIL) [Concomitant]

REACTIONS (3)
  - Bronchitis [None]
  - Sinusitis [None]
  - Diarrhoea [None]
